FAERS Safety Report 7453838-0 (Version None)
Quarter: 2011Q2

REPORT INFORMATION
  Report Type: 
  Country: None (occurrence: None)
  Receive Date: 20110502
  Receipt Date: 20080125
  Transmission Date: 20111010
  Serious: Yes (Death, Other)
  Sender: FDA-Public Use
  Company Number: US-BAYER-200812227NA

PATIENT
  Age: 74 Year
  Sex: Female
  Weight: 82.086 kg

DRUGS (16)
  1. LOTREL [Concomitant]
     Dosage: 10/20 MG DAILY
     Route: 048
  2. TOPROL-XL [Concomitant]
     Dosage: 100 MG, QD
     Route: 048
  3. PLAVIX [Concomitant]
     Dosage: 75 MG, QD
  4. NITROGLYCERIN [Concomitant]
     Dosage: 0.4 MG, PRN
     Route: 048
  5. HUMULIN R [Concomitant]
     Dosage: 5 U, UNK
     Route: 042
     Dates: start: 20050916, end: 20050916
  6. ACETYLSALICYLIC ACID SRT [Concomitant]
     Dosage: 81 MG, QD
     Route: 048
  7. GEMFIBROZIL [Concomitant]
     Dosage: 600 MG, UNK
     Route: 048
     Dates: start: 20050915
  8. TRASYLOL [Suspect]
     Indication: CORONARY ARTERY BYPASS
     Dosage: 1.5 ML OF TEST DOSE AND THEN 70 ML/HR
     Route: 042
     Dates: start: 20050916, end: 20050916
  9. IMDUR [Concomitant]
     Dosage: 60 MG, QD
     Route: 048
     Dates: end: 20050913
  10. HEPARIN [Concomitant]
     Dosage: 25000 U, UNK
     Route: 042
     Dates: start: 20050916, end: 20050916
  11. WHOLE BLOOD [Concomitant]
     Dosage: 2 U, UNK
     Route: 042
     Dates: start: 20050916, end: 20050916
  12. TRICOR [Concomitant]
     Dosage: 145 MG, UNK
     Route: 048
  13. AVANDIA [Concomitant]
     Dosage: 4 MG, QD
     Route: 048
  14. LASIX [Concomitant]
     Dosage: 80 MG, QD
     Route: 048
  15. ZETIA [Concomitant]
     Dosage: 5 MG, QD
     Route: 048
  16. VANCOMYCIN [Concomitant]
     Dosage: 1 G, QD
     Route: 042

REACTIONS (11)
  - ACTIVITIES OF DAILY LIVING IMPAIRED [None]
  - EMOTIONAL DISTRESS [None]
  - ADVERSE EVENT [None]
  - DEATH [None]
  - CARDIAC ARREST [None]
  - PAIN [None]
  - RENAL FAILURE [None]
  - INJURY [None]
  - MYOCARDIAL INFARCTION [None]
  - ANXIETY [None]
  - ANHEDONIA [None]
